FAERS Safety Report 9925248 (Version 1)
Quarter: 2014Q1

REPORT INFORMATION
  Report Type: Spontaneous
  Country: US (occurrence: US)
  Receive Date: 20140226
  Receipt Date: 20140226
  Transmission Date: 20141002
  Serious: Yes (Other)
  Sender: FDA-Public Use
  Company Number: US-BRACCO-009717

PATIENT
  Age: 53 Year
  Sex: Male
  Weight: 103 kg

DRUGS (3)
  1. ISOVUE 300 [Suspect]
     Indication: COMPUTERISED TOMOGRAM HEAD
     Route: 042
     Dates: start: 20130703, end: 20130703
  2. PRAVASTATIN [Concomitant]
  3. CHEMOTHERAPEUTICS [Concomitant]

REACTIONS (4)
  - Urticaria [Recovered/Resolved]
  - Eye swelling [Recovered/Resolved]
  - Erythema [Recovered/Resolved]
  - Feeling hot [Recovered/Resolved]
